FAERS Safety Report 20781851 (Version 1)
Quarter: 2022Q2

REPORT INFORMATION
  Report Type: Spontaneous
  Country: KR (occurrence: KR)
  Receive Date: 20220504
  Receipt Date: 20220504
  Transmission Date: 20220720
  Serious: Yes (Death, Life-Threatening, Hospitalization, Other)
  Sender: FDA-Public Use
  Company Number: KR-STRIDES ARCOLAB LIMITED-2022SP004889

PATIENT
  Age: 2 Month
  Sex: Female

DRUGS (6)
  1. CISPLATIN [Suspect]
     Active Substance: CISPLATIN
     Indication: Adrenocortical carcinoma
     Dosage: UNK
     Route: 065
  2. ETOPOSIDE [Suspect]
     Active Substance: ETOPOSIDE
     Indication: Adrenocortical carcinoma
     Dosage: UNK
     Route: 065
  3. ETOMIDATE [Concomitant]
     Active Substance: ETOMIDATE
     Indication: Cushing^s syndrome
     Dosage: 0.3 MILLIGRAM/KILOGRAM, LOADING DOSE, INFUSION
     Route: 050
  4. ETOMIDATE [Concomitant]
     Active Substance: ETOMIDATE
     Dosage: 0.03 MILLIGRAM/KILOGRAM, EVERY HOUR, MAINTENANCE DOSE, INFUSION
     Route: 050
  5. ETOMIDATE [Concomitant]
     Active Substance: ETOMIDATE
     Dosage: UNK, INFUSION
     Route: 050
  6. ETOMIDATE [Concomitant]
     Active Substance: ETOMIDATE
     Dosage: 0.03 MILLIGRAM/KILOGRAM, EVERY HOUR, INFUSION
     Route: 050

REACTIONS (5)
  - Acute respiratory distress syndrome [Fatal]
  - Pneumonia [Fatal]
  - Condition aggravated [Fatal]
  - Pancytopenia [Fatal]
  - Off label use [Unknown]
